FAERS Safety Report 11943354 (Version 1)
Quarter: 2016Q1

REPORT INFORMATION
  Report Type: Spontaneous
  Country: US (occurrence: US)
  Receive Date: 20160125
  Receipt Date: 20160125
  Transmission Date: 20160526
  Serious: No
  Sender: FDA-Public Use
  Company Number: US-UNITED THERAPEUTICS-UNT-2015-011287

PATIENT
  Age: 43 Year
  Sex: Female
  Weight: 65.76 kg

DRUGS (3)
  1. TRACLEER [Concomitant]
     Active Substance: BOSENTAN
     Indication: PRODUCT USED FOR UNKNOWN INDICATION
  2. REVATIO [Concomitant]
     Active Substance: SILDENAFIL CITRATE
     Indication: PRODUCT USED FOR UNKNOWN INDICATION
  3. REMODULIN [Suspect]
     Active Substance: TREPROSTINIL
     Indication: PULMONARY ARTERIAL HYPERTENSION
     Dosage: 0.052 ?G/KG/MIN, CONTINUING
     Route: 058
     Dates: start: 20150728

REACTIONS (6)
  - Infusion site pain [Unknown]
  - Dermatitis contact [Unknown]
  - Infection [Unknown]
  - Nasopharyngitis [Unknown]
  - Dyspnoea exertional [Unknown]
  - Fatigue [Unknown]

NARRATIVE: CASE EVENT DATE: 201509
